FAERS Safety Report 8185702-6 (Version None)
Quarter: 2012Q1

REPORT INFORMATION
  Report Type: 
  Country: None (occurrence: None)
  Receive Date: 20120305
  Receipt Date: 20120227
  Transmission Date: 20120608
  Serious: Yes (Other)
  Sender: FDA-Public Use
  Company Number: US-BAYER-2012-007365

PATIENT
  Age: 46 Year
  Sex: Female

DRUGS (5)
  1. BETASERON [Suspect]
     Dosage: 8 MIU, QOD
     Route: 058
     Dates: start: 20111024, end: 20120103
  2. BETASERON [Suspect]
     Indication: MULTIPLE SCLEROSIS
     Dosage: UNK
     Dates: start: 20101201, end: 20101203
  3. BETASERON [Suspect]
     Dosage: UNK
     Dates: start: 20110124, end: 20110715
  4. BETASERON [Suspect]
     Dosage: UNK
     Dates: start: 20101213, end: 20110103
  5. BETASERON [Suspect]
     Dosage: 2 MIU, QOD
     Route: 058
     Dates: start: 20120220

REACTIONS (8)
  - SPLENOMEGALY [None]
  - MULTIPLE SCLEROSIS RELAPSE [None]
  - PLATELET COUNT DECREASED [None]
  - CONDITION AGGRAVATED [None]
  - WHITE BLOOD CELL COUNT DECREASED [None]
  - MULTIPLE SCLEROSIS [None]
  - MUSCULOSKELETAL STIFFNESS [None]
  - MUSCULAR WEAKNESS [None]
